FAERS Safety Report 7557855-1 (Version None)
Quarter: 2011Q2

REPORT INFORMATION
  Report Type: 
  Country: None (occurrence: None)
  Receive Date: 20110620
  Receipt Date: 20110609
  Transmission Date: 20111010
  Serious: Yes (Other)
  Sender: FDA-Public Use
  Company Number: CHPA2011US07829

PATIENT
  Sex: Male
  Weight: 172.34 kg

DRUGS (2)
  1. NICOTINE [Suspect]
     Indication: SMOKING CESSATION THERAPY
     Dosage: 21 MG, ONCE/SINGLE
     Route: 062
     Dates: start: 20110609, end: 20110609
  2. CARDIAC THERAPY [Concomitant]
     Dosage: UNK, UNK

REACTIONS (2)
  - ANGINA PECTORIS [None]
  - CHEST PAIN [None]
